FAERS Safety Report 15605069 (Version 1)
Quarter: 2018Q4

REPORT INFORMATION
  Report Type: Spontaneous
  Country: TH (occurrence: TH)
  Receive Date: 20181112
  Receipt Date: 20181112
  Transmission Date: 20190205
  Serious: Yes (Other)
  Sender: FDA-Public Use
  Company Number: TH-ACCORD-091098

PATIENT
  Age: 66 Year
  Sex: Male

DRUGS (1)
  1. DOCETAXEL. [Suspect]
     Active Substance: DOCETAXEL
     Indication: LUNG NEOPLASM MALIGNANT
     Dosage: INTRAVENOUS TRANSFUSION
     Route: 042

REACTIONS (1)
  - Dermatitis [Recovered/Resolved with Sequelae]
